FAERS Safety Report 23323474 (Version 1)
Quarter: 2023Q4

REPORT INFORMATION
  Report Type: Spontaneous
  Country: US (occurrence: None)
  Receive Date: 20231220
  Receipt Date: 20231220
  Transmission Date: 20240109
  Serious: No
  Sender: FDA-Public Use
  Company Number: US-ROCHE-3382718

PATIENT
  Age: 54 Year
  Sex: Female
  Weight: 55.388 kg

DRUGS (4)
  1. RITUXAN [Suspect]
     Active Substance: RITUXIMAB
     Indication: B-cell lymphoma
     Dosage: THERAPY START DATE : 16/FEB/2023
     Route: 041
  2. ROSUVASTATIN [Concomitant]
     Active Substance: ROSUVASTATIN
     Indication: Blood cholesterol increased
     Dosage: ONGOING YES
     Route: 048
     Dates: start: 202301
  3. ASPIRIN [Concomitant]
     Active Substance: ASPIRIN
     Dosage: ONGOING YES
     Route: 048
  4. BIOTIN [Concomitant]
     Active Substance: BIOTIN
     Indication: Alopecia
     Route: 048
     Dates: start: 202306

REACTIONS (3)
  - Alopecia [Not Recovered/Not Resolved]
  - Nasopharyngitis [Recovered/Resolved]
  - Blood triglycerides increased [Unknown]

NARRATIVE: CASE EVENT DATE: 20230201
